FAERS Safety Report 21655150 (Version 3)
Quarter: 2023Q1

REPORT INFORMATION
  Report Type: Spontaneous
  Country: US (occurrence: US)
  Receive Date: 20221129
  Receipt Date: 20230117
  Transmission Date: 20230418
  Serious: No
  Sender: FDA-Public Use
  Company Number: US-PFIZER INC-202201323922

PATIENT
  Age: 17 Year
  Sex: Female
  Weight: 31.3 kg

DRUGS (3)
  1. GENOTROPIN [Suspect]
     Active Substance: SOMATROPIN
     Indication: Growth hormone deficiency
     Dosage: 1.8 MG, 1X/DAY (ONCE A DAY BY INJECTION EVERY NIGHT BEFORE BED)
  2. LEVOTHYROXINE [Concomitant]
     Active Substance: LEVOTHYROXINE
     Indication: Hypothyroidism
     Dosage: UNK , DAILY (1.5 TABLET)
     Route: 048
  3. VITAMIN D NOS [Concomitant]
     Active Substance: VITAMIN D NOS
     Indication: Vitamin D deficiency
     Dosage: 1000 UG, 2X/DAY
     Route: 048

REACTIONS (2)
  - Device use issue [Unknown]
  - Therapeutic product effect decreased [Unknown]
